FAERS Safety Report 8312883-3 (Version None)
Quarter: 2012Q2

REPORT INFORMATION
  Report Type: 
  Country: None (occurrence: None)
  Receive Date: 20120426
  Receipt Date: 20120419
  Transmission Date: 20120825
  Serious: No
  Sender: FDA-Public Use
  Company Number: US-PFIZER INC-2012059075

PATIENT
  Sex: Female
  Weight: 108.8 kg

DRUGS (7)
  1. CYMBALTA [Concomitant]
     Dosage: UNK
  2. LYRICA [Suspect]
     Dosage: UNK
  3. FLEXERIL [Concomitant]
     Dosage: UNK
  4. LYRICA [Suspect]
     Indication: PAIN
     Dosage: 500 MG, (300MG IN THE MORNING, 100MG IN THE AFTERNOON AND 100MG BEFORE BED TIME)
     Route: 048
  5. LYRICA [Suspect]
     Dosage: 300 MG, 1X/DAY
     Route: 048
  6. DICLOFENAC [Concomitant]
     Dosage: UNK
  7. LYRICA [Suspect]
     Dosage: UNK

REACTIONS (1)
  - PAIN [None]
